FAERS Safety Report 7761929-X (Version None)
Quarter: 2011Q3

REPORT INFORMATION
  Report Type: 
  Country: None (occurrence: None)
  Receive Date: 20110920
  Receipt Date: 20110907
  Transmission Date: 20111222
  Serious: Yes (Other)
  Sender: FDA-Public Use
  Company Number: US-SANOFI-AVENTIS-2011SA052468

PATIENT
  Age: 29 Year
  Sex: Female
  Weight: 99.8 kg

DRUGS (10)
  1. VITAMIN D [Concomitant]
     Dosage: DOSE:50000 UNIT(S)
     Dates: start: 20090301
  2. PROZAC [Concomitant]
     Indication: DEPRESSION
     Dates: start: 20080301
  3. LANTUS [Suspect]
     Dosage: DOSE:100 UNIT(S)
     Route: 058
     Dates: start: 20110728, end: 20110814
  4. LANTUS [Suspect]
     Dosage: DOSE:100 UNIT(S)
     Route: 058
     Dates: start: 20110820
  5. HUMALOG [Suspect]
     Indication: DIABETES MELLITUS
     Route: 065
     Dates: start: 20110801, end: 20110801
  6. AMBIEN [Concomitant]
     Indication: INSOMNIA
     Route: 048
     Dates: start: 20080301
  7. ATIVAN [Concomitant]
     Indication: ANXIETY
     Dates: start: 20080301
  8. INSULIN DETEMIR [Concomitant]
     Dates: start: 20110728, end: 20110814
  9. LANTUS [Suspect]
     Dosage: DOSE:100 UNIT(S)
     Route: 058
     Dates: start: 20110820
  10. LANTUS [Suspect]
     Indication: DIABETES MELLITUS
     Dosage: DOSE:100 UNIT(S)
     Route: 058
     Dates: start: 20110728, end: 20110814

REACTIONS (9)
  - PRESYNCOPE [None]
  - CONFUSIONAL STATE [None]
  - DIZZINESS [None]
  - VISION BLURRED [None]
  - BLOOD GLUCOSE DECREASED [None]
  - HYPOGLYCAEMIA [None]
  - BALANCE DISORDER [None]
  - INCORRECT DOSE ADMINISTERED [None]
  - LOSS OF CONSCIOUSNESS [None]
